FAERS Safety Report 5960356-5 (Version None)
Quarter: 2008Q4

REPORT INFORMATION
  Report Type: 
  Country: None (occurrence: None)
  Receive Date: 20081118
  Receipt Date: 20081105
  Transmission Date: 20090506
  Serious: Yes (Other)
  Sender: FDA-Public Use
  Company Number: MWP2008-00588

PATIENT
  Age: 67 Year
  Sex: Female

DRUGS (1)
  1. NOVASTAN HI (ARGATROBAN) (ARGATROBAN) [Suspect]
     Dosage: INTRAVENOUS DRIP
     Route: 041

REACTIONS (2)
  - BLEEDING TIME PROLONGED [None]
  - CARDIAC TAMPONADE [None]
